FAERS Safety Report 5084548-5 (Version None)
Quarter: 2006Q3

REPORT INFORMATION
  Report Type: 
  Country: None (occurrence: None)
  Receive Date: 20060821
  Receipt Date: 20060620
  Transmission Date: 20061208
  Serious: Yes (Death, Other)
  Sender: FDA-Public Use
  Company Number: DE-GILEAD-2006-0009788

PATIENT
  Sex: Male
  Weight: 52.2 kg

DRUGS (4)
  1. VIREAD [Suspect]
     Indication: HIV INFECTION
     Route: 048
     Dates: start: 20050803, end: 20051205
  2. VIREAD [Suspect]
     Dates: start: 20011201, end: 20020301
  3. FOSAMPRENAVIR [Concomitant]
     Route: 048
     Dates: start: 20030201, end: 20051201
  4. LAMIVUDINE [Concomitant]
     Route: 048
     Dates: start: 20020401

REACTIONS (3)
  - COMA HEPATIC [None]
  - FANCONI SYNDROME ACQUIRED [None]
  - GLYCOSURIA [None]
